FAERS Safety Report 18240169 (Version 1)
Quarter: 2020Q3

REPORT INFORMATION
  Report Type: Spontaneous
  Country: IT (occurrence: IT)
  Receive Date: 20200908
  Receipt Date: 20200908
  Transmission Date: 20201103
  Serious: Yes (Death)
  Sender: FDA-Public Use
  Company Number: IT-ROCHE-2673226

PATIENT
  Age: 72 Year
  Sex: Male

DRUGS (2)
  1. TOCILIZUMAB. [Suspect]
     Active Substance: TOCILIZUMAB
     Indication: COVID-19
     Route: 058
  2. OXYGEN. [Suspect]
     Active Substance: OXYGEN
     Indication: COVID-19
     Route: 065

REACTIONS (3)
  - Intentional product use issue [Unknown]
  - COVID-19 [Fatal]
  - Off label use [Unknown]

NARRATIVE: CASE EVENT DATE: 20200906
